FAERS Safety Report 21871444 (Version 1)
Quarter: 2023Q1

REPORT INFORMATION
  Report Type: Spontaneous
  Country: US (occurrence: None)
  Receive Date: 20230113
  Receipt Date: 20230113
  Transmission Date: 20230417
  Serious: No
  Sender: FDA-Public Use
  Company Number: None

PATIENT
  Sex: Female

DRUGS (1)
  1. RETACRIT [Suspect]
     Active Substance: EPOETIN ALFA-EPBX
     Dosage: OTHER FREQUENCY : OTHER;?
     Route: 058
     Dates: start: 20220621

REACTIONS (2)
  - Haemoglobin decreased [None]
  - Haematocrit decreased [None]
